FAERS Safety Report 6438521-2 (Version None)
Quarter: 2009Q4

REPORT INFORMATION
  Report Type: 
  Country: None (occurrence: None)
  Receive Date: 20091109
  Receipt Date: 20091027
  Transmission Date: 20100525
  Serious: Yes (Hospitalization)
  Sender: FDA-Public Use
  Company Number: 230011M09RUS

PATIENT
  Age: 39 Year
  Sex: Female
  Weight: 55 kg

DRUGS (1)
  1. REBIF [Suspect]
     Indication: RELAPSING-REMITTING MULTIPLE SCLEROSIS
     Dosage: 44 MCG, 3 IN 1 WEEKS, SUBCUTANEOUS
     Route: 058
     Dates: start: 20020101, end: 20090101

REACTIONS (3)
  - ABASIA [None]
  - INFLUENZA LIKE ILLNESS [None]
  - PYREXIA [None]
